FAERS Safety Report 9686641 (Version 2)
Quarter: 2013Q4

REPORT INFORMATION
  Report Type: Spontaneous
  Country: US (occurrence: US)
  Receive Date: 20131113
  Receipt Date: 20131126
  Transmission Date: 20140711
  Serious: Yes (Other)
  Sender: FDA-Public Use
  Company Number: US-PFIZER INC-2013319951

PATIENT
  Age: 87 Year
  Sex: Male
  Weight: 63.49 kg

DRUGS (3)
  1. LIPITOR [Suspect]
     Indication: BLOOD CHOLESTEROL INCREASED
     Dosage: UNK
  2. GLUCOTROL [Suspect]
     Indication: DIABETES MELLITUS
     Dosage: UNK
  3. CALAN [Suspect]
     Indication: HYPERTENSION
     Dosage: UNK

REACTIONS (2)
  - Pulmonary mass [Recovered/Resolved]
  - Eating disorder [Unknown]
